FAERS Safety Report 6429601-6 (Version None)
Quarter: 2009Q4

REPORT INFORMATION
  Report Type: 
  Country: None (occurrence: None)
  Receive Date: 20091103
  Receipt Date: 20091027
  Transmission Date: 20100525
  Serious: Yes (Other)
  Sender: FDA-Public Use
  Company Number: 20090492

PATIENT
  Age: 21 Year
  Sex: Female

DRUGS (2)
  1. EPINEPHRINE [Suspect]
     Indication: DERMATITIS ALLERGIC
     Dosage: INJECTION NOS
  2. CONTRACEPTIVES [Concomitant]

REACTIONS (7)
  - DIZZINESS [None]
  - DYSPNOEA [None]
  - HEADACHE [None]
  - MACULOPATHY [None]
  - NAUSEA [None]
  - OPTIC NEURITIS [None]
  - TREMOR [None]
